FAERS Safety Report 17752197 (Version 1)
Quarter: 2020Q2

REPORT INFORMATION
  Report Type: Spontaneous
  Country: US (occurrence: US)
  Receive Date: 20200506
  Receipt Date: 20200506
  Transmission Date: 20200714
  Serious: Yes (Other)
  Sender: FDA-Public Use
  Company Number: NVSC2020US121635

PATIENT
  Age: 53 Year
  Sex: Male

DRUGS (1)
  1. PREDNISONE. [Suspect]
     Active Substance: PREDNISONE
     Indication: PRODUCT USED FOR UNKNOWN INDICATION
     Dosage: 1 MG/KG
     Route: 065

REACTIONS (5)
  - Visual acuity reduced [Unknown]
  - Iridocyclitis [Unknown]
  - Uveitis [Unknown]
  - Blindness [Unknown]
  - Intraocular pressure increased [Unknown]
